FAERS Safety Report 9445362 (Version 1)
Quarter: 2013Q3

REPORT INFORMATION
  Report Type: Spontaneous
  Country: GB (occurrence: None)
  Receive Date: 20130802
  Receipt Date: 20130802
  Transmission Date: 20140515
  Serious: Yes (Other)
  Sender: FDA-Public Use
  Company Number: GER/UKI/13/0025161

PATIENT
  Sex: 0

DRUGS (1)
  1. AMLODIPINE (AMLODIPINE) [Suspect]
     Indication: BLOOD PRESSURE

REACTIONS (8)
  - Visual acuity reduced [None]
  - Memory impairment [None]
  - Headache [None]
  - Pain [None]
  - Palpitations [None]
  - Tinnitus [None]
  - Insomnia [None]
  - Musculoskeletal stiffness [None]
